FAERS Safety Report 9333957 (Version 2)
Quarter: 2013Q4

REPORT INFORMATION
  Report Type: Spontaneous
  Country: GB (occurrence: None)
  Receive Date: 20130604
  Receipt Date: 20131113
  Transmission Date: 20140711
  Serious: Yes (Hospitalization)
  Sender: FDA-Public Use
  Company Number: AUR-APL-2013-04635

PATIENT
  Age: 68 Year
  Sex: Male
  Weight: 74 kg

DRUGS (3)
  1. NAPROXEN (NAPROXEN) [Suspect]
     Indication: ARTHRALGIA
     Dosage: 1000 MG
     Route: 048
     Dates: start: 20130215, end: 20130226
  2. NAPROXEN (NAPROXEN) [Suspect]
     Indication: JOINT SWELLING
     Dosage: 1000 MG
     Route: 048
     Dates: start: 20130215, end: 20130226
  3. PREGABALIN (PREGABALIN) [Concomitant]

REACTIONS (12)
  - Dizziness [None]
  - Balance disorder [None]
  - Cerebral haemorrhage [None]
  - Muscular weakness [None]
  - Brain compression [None]
  - Brain oedema [None]
  - Hypertension [None]
  - Loss of proprioception [None]
  - Sensory loss [None]
  - Romberg test positive [None]
  - Blood bilirubin increased [None]
  - Lymphocyte count decreased [None]
